FAERS Safety Report 7530197-6 (Version None)
Quarter: 2011Q2

REPORT INFORMATION
  Report Type: 
  Country: None (occurrence: None)
  Receive Date: 20110526
  Receipt Date: 20110520
  Transmission Date: 20111010
  Serious: Yes (Hospitalization, Disabling, Other)
  Sender: FDA-Public Use
  Company Number: 2009SP023491

PATIENT
  Age: 21 Year
  Sex: Female
  Weight: 58.9676 kg

DRUGS (1)
  1. NUVARING [Suspect]
     Indication: CONTRACEPTION
     Dates: start: 20070901, end: 20080801

REACTIONS (14)
  - PAIN [None]
  - HAEMATOMA [None]
  - ISCHAEMIC STROKE [None]
  - ANGIOPATHY [None]
  - BRAIN INJURY [None]
  - CONVULSION [None]
  - MIGRAINE [None]
  - THROMBOSIS [None]
  - ENCEPHALOMALACIA [None]
  - HEADACHE [None]
  - MYDRIASIS [None]
  - INJURY [None]
  - CEREBRAL HAEMORRHAGE [None]
  - LETHARGY [None]
